FAERS Safety Report 24582887 (Version 1)
Quarter: 2024Q4

REPORT INFORMATION
  Report Type: Spontaneous
  Country: US (occurrence: US)
  Receive Date: 20241106
  Receipt Date: 20241106
  Transmission Date: 20250115
  Serious: No
  Sender: UCB
  Company Number: US-UCBSA-2023051888

PATIENT
  Sex: Female

DRUGS (3)
  1. VIMPAT [Suspect]
     Active Substance: LACOSAMIDE
     Indication: Seizure
     Dosage: 500MG/750MG
  2. FYCOMPA [Suspect]
     Active Substance: PERAMPANEL
     Indication: Seizure
     Dosage: UNK
  3. LAMICTAL [Suspect]
     Active Substance: LAMOTRIGINE
     Indication: Seizure
     Dosage: UNK

REACTIONS (2)
  - Multiple-drug resistance [Unknown]
  - Overdose [Unknown]

NARRATIVE: CASE EVENT DATE: 20231027
